FAERS Safety Report 24069515 (Version 1)
Quarter: 2024Q3

REPORT INFORMATION
  Report Type: Report from Study
  Country: US (occurrence: US)
  Receive Date: 20240710
  Receipt Date: 20240710
  Transmission Date: 20241016
  Serious: No
  Sender: ROCHE
  Company Number: US-ROCHE-3480835

PATIENT
  Age: 82 Year
  Sex: Female

DRUGS (1)
  1. ALECENSA [Suspect]
     Active Substance: ALECTINIB HYDROCHLORIDE
     Indication: Neoplasm malignant
     Route: 048

REACTIONS (1)
  - Dysphonia [Unknown]
